FAERS Safety Report 6303692-5 (Version None)
Quarter: 2009Q3

REPORT INFORMATION
  Report Type: 
  Country: None (occurrence: None)
  Receive Date: 20090805
  Receipt Date: 20090721
  Transmission Date: 20100115
  Serious: Yes (Hospitalization)
  Sender: FDA-Public Use
  Company Number: 2009002146

PATIENT
  Age: 73 Year
  Sex: Male

DRUGS (1)
  1. TARCEVA [Suspect]
     Indication: PANCREATIC CARCINOMA
     Dosage: (100 MG, QD), ORAL
     Route: 048
     Dates: start: 20090423

REACTIONS (9)
  - CATHETER RELATED COMPLICATION [None]
  - DEEP VEIN THROMBOSIS [None]
  - DEHYDRATION [None]
  - EXOSTOSIS [None]
  - FATIGUE [None]
  - MENTAL STATUS CHANGES [None]
  - METASTASES TO LIVER [None]
  - OSTEOARTHRITIS [None]
  - PYREXIA [None]
